FAERS Safety Report 7282848-1 (Version None)
Quarter: 2011Q1

REPORT INFORMATION
  Report Type: 
  Country: None (occurrence: None)
  Receive Date: 20110209
  Receipt Date: 20110131
  Transmission Date: 20110831
  Serious: Yes (Hospitalization, Other)
  Sender: FDA-Public Use
  Company Number: SE-JNJFOC-20110200187

PATIENT
  Age: 53 Year
  Sex: Female

DRUGS (3)
  1. REMICADE [Suspect]
     Indication: RHEUMATOID ARTHRITIS
     Route: 042
  2. TIBINIDE [Concomitant]
     Indication: TUBERCULIN TEST POSITIVE
  3. METHOTREXATE [Concomitant]

REACTIONS (2)
  - TUBERCULOSIS [None]
  - WEIGHT DECREASED [None]
